FAERS Safety Report 25075702 (Version 2)
Quarter: 2025Q2

REPORT INFORMATION
  Report Type: Report from Study
  Country: CA (occurrence: CA)
  Receive Date: 20250313
  Receipt Date: 20250611
  Transmission Date: 20250716
  Serious: Yes (Hospitalization, Other)
  Sender: ABBVIE
  Company Number: CA-JNJFOC-20250322335

PATIENT
  Age: 93 Year
  Sex: Male

DRUGS (2)
  1. IMBRUVICA [Suspect]
     Active Substance: IBRUTINIB
     Indication: Waldenstrom^s macroglobulinaemia
     Route: 048
     Dates: start: 20200810
  2. IMBRUVICA [Suspect]
     Active Substance: IBRUTINIB
     Indication: Waldenstrom^s macroglobulinaemia
     Dosage: 140X3 CAPSULES X 1 DAY
     Route: 048

REACTIONS (5)
  - Thrombosis [Recovering/Resolving]
  - Hospitalisation [Unknown]
  - Incorrect dose administered [Unknown]
  - Waldenstrom^s macroglobulinaemia [Unknown]
  - Hip fracture [Unknown]
